FAERS Safety Report 21364314 (Version 1)
Quarter: 2022Q3

REPORT INFORMATION
  Report Type: Spontaneous
  Country: US (occurrence: US)
  Receive Date: 20220922
  Receipt Date: 20220922
  Transmission Date: 20221027
  Serious: Yes (Hospitalization)
  Sender: FDA-Public Use
  Company Number: US-MYLANLABS-2022M1095657

PATIENT
  Age: 57 Year
  Sex: Male

DRUGS (4)
  1. PROCHLORPERAZINE [Suspect]
     Active Substance: PROCHLORPERAZINE
     Indication: Impaired gastric emptying
     Dosage: UNK
     Route: 048
  2. ONDANSETRON [Suspect]
     Active Substance: ONDANSETRON
     Indication: Impaired gastric emptying
     Dosage: UNK
     Route: 048
  3. FAMOTIDINE [Suspect]
     Active Substance: FAMOTIDINE
     Indication: Impaired gastric emptying
     Dosage: UNK
     Route: 065
  4. BACLOFEN [Suspect]
     Active Substance: BACLOFEN
     Indication: Impaired gastric emptying
     Dosage: UNK
     Route: 065

REACTIONS (2)
  - Drug ineffective [Unknown]
  - Off label use [Unknown]
